FAERS Safety Report 10969292 (Version 1)
Quarter: 2015Q1

REPORT INFORMATION
  Report Type: Spontaneous
  Country: US (occurrence: None)
  Receive Date: 20150330
  Receipt Date: 20150330
  Transmission Date: 20150721
  Serious: Yes (Death, Hospitalization)
  Sender: FDA-Public Use
  Company Number: None

PATIENT
  Age: 1 Year
  Sex: Male
  Weight: 11.4 kg

DRUGS (3)
  1. CYTARABINE. [Suspect]
     Active Substance: CYTARABINE
     Dates: end: 20111125
  2. DAUNORUBICIN [Suspect]
     Active Substance: DAUNORUBICIN
     Dates: end: 20111125
  3. THIOGUANINE [Suspect]
     Active Substance: THIOGUANINE
     Dates: end: 20111126

REACTIONS (2)
  - Pneumonia [None]
  - Hepatic failure [None]

NARRATIVE: CASE EVENT DATE: 20111205
